FAERS Safety Report 18137239 (Version 11)
Quarter: 2020Q4

REPORT INFORMATION
  Report Type: Report from Study
  Country: US (occurrence: US)
  Receive Date: 20200811
  Receipt Date: 20201219
  Transmission Date: 20210113
  Serious: Yes (Other)
  Sender: FDA-Public Use
  Company Number: NVSC2020US218095

PATIENT
  Age: 71 Year
  Sex: Female

DRUGS (3)
  1. ENTRESTO [Suspect]
     Active Substance: SACUBITRIL\VALSARTAN
     Dosage: 1 DF (24/26MG) BID
     Route: 048
  2. ALBUTEROL. [Suspect]
     Active Substance: ALBUTEROL
     Indication: PRODUCT USED FOR UNKNOWN INDICATION
     Dosage: UNK
     Route: 065
     Dates: start: 202011
  3. ENTRESTO [Suspect]
     Active Substance: SACUBITRIL\VALSARTAN
     Indication: PRODUCT USED FOR UNKNOWN INDICATION
     Dosage: 24 MG, BID(DOSE:49/51MG)
     Route: 048
     Dates: start: 202006

REACTIONS (7)
  - Dizziness [Unknown]
  - Blood potassium increased [Unknown]
  - Blood pressure fluctuation [Unknown]
  - Dizziness postural [Recovering/Resolving]
  - Dyspnoea [Unknown]
  - Headache [Unknown]
  - Choking [Unknown]

NARRATIVE: CASE EVENT DATE: 20200922
